FAERS Safety Report 7916471-X (Version None)
Quarter: 2011Q4

REPORT INFORMATION
  Report Type: 
  Country: None (occurrence: None)
  Receive Date: 20111114
  Receipt Date: 20111102
  Transmission Date: 20120403
  Serious: Yes (Other)
  Sender: FDA-Public Use
  Company Number: ACO_27090_2011

PATIENT
  Age: 35 Year
  Sex: Male

DRUGS (4)
  1. BACLOFEN (BACLOEFN) [Concomitant]
  2. AMPYRA [Suspect]
     Indication: GAIT DISTURBANCE
     Dosage: 10 MG, BID
     Dates: start: 20110913, end: 20111002
  3. OXYBUTYNIN [Concomitant]
  4. GABAPENTIN [Concomitant]

REACTIONS (1)
  - CONVULSION [None]
